FAERS Safety Report 5938047-6 (Version None)
Quarter: 2008Q4

REPORT INFORMATION
  Report Type: 
  Country: None (occurrence: None)
  Receive Date: 20081031
  Receipt Date: 20081020
  Transmission Date: 20090506
  Serious: Yes (Life-Threatening, Hospitalization, Other)
  Sender: FDA-Public Use
  Company Number: GB-PFIZER INC-2008085596

PATIENT
  Sex: Female
  Weight: 63.1 kg

DRUGS (1)
  1. CHAMPIX [Suspect]
     Indication: SMOKING CESSATION THERAPY
     Dosage: FREQ:BID: EVERY DAY
     Route: 048
     Dates: start: 20080401, end: 20080601

REACTIONS (3)
  - DYSPNOEA [None]
  - GAIT DISTURBANCE [None]
  - NASOPHARYNGITIS [None]
